FAERS Safety Report 5485929-8 (Version None)
Quarter: 2007Q4

REPORT INFORMATION
  Report Type: 
  Country: None (occurrence: None)
  Receive Date: 20071015
  Receipt Date: 20071003
  Transmission Date: 20080405
  Serious: Yes (Other)
  Sender: FDA-Public Use
  Company Number: US-SHR-US-2007-011613

PATIENT

DRUGS (3)
  1. MAGNEVIST [Suspect]
     Dosage: 12 ML, 1 DOSE
     Dates: start: 20010901, end: 20010901
  2. OMNISCAN [Suspect]
     Dosage: 31 ML, 1 DOSE
     Dates: start: 20021201, end: 20021201
  3. OMNISCAN [Suspect]
     Dosage: UNK, 1 DOSE
     Dates: start: 20021216, end: 20021216

REACTIONS (1)
  - NEPHROGENIC SYSTEMIC FIBROSIS [None]
